FAERS Safety Report 11911630 (Version 5)
Quarter: 2017Q3

REPORT INFORMATION
  Report Type: Spontaneous
  Country: US (occurrence: US)
  Receive Date: 20160112
  Receipt Date: 20170717
  Transmission Date: 20171127
  Serious: No
  Sender: FDA-Public Use
  Company Number: PHEH2016US000816

PATIENT
  Age: 23 Year
  Sex: Male

DRUGS (2)
  1. SANDOSTATIN [Suspect]
     Active Substance: OCTREOTIDE ACETATE
     Indication: PRODUCT USED FOR UNKNOWN INDICATION
     Dosage: UNK
     Route: 065
  2. SANDOSTATIN LAR DEPOT [Suspect]
     Active Substance: OCTREOTIDE ACETATE
     Indication: PRODUCT USED FOR UNKNOWN INDICATION
     Dosage: 40 MG (2 VIALS), UNK
     Route: 065

REACTIONS (7)
  - Joint swelling [Unknown]
  - Tremor [Unknown]
  - Pain [Unknown]
  - Product formulation issue [Unknown]
  - Fall [Unknown]
  - Anxiety [Unknown]
  - Product deposit [Unknown]

NARRATIVE: CASE EVENT DATE: 20170708
